FAERS Safety Report 4381185-2 (Version None)
Quarter: 2004Q2

REPORT INFORMATION
  Report Type: 
  Country: None (occurrence: None)
  Receive Date: 20040621
  Receipt Date: 20040609
  Transmission Date: 20050107
  Serious: Yes (Other)
  Sender: FDA-Public Use
  Company Number: 200412025JP

PATIENT
  Sex: 0

DRUGS (4)
  1. ARAVA [Suspect]
     Dosage: DOSE: UNK
     Route: 048
     Dates: start: 20040515, end: 20040514
  2. MOBIC [Concomitant]
     Dosage: DOSE: UNK
     Route: 048
  3. ISALON [Concomitant]
     Dosage: DOSE: UNK
     Route: 048
  4. PREDONINE [Concomitant]
     Dosage: DOSE: UNK
     Route: 048

REACTIONS (2)
  - MENORRHAGIA [None]
  - PLATELET COUNT ABNORMAL [None]
